FAERS Safety Report 20469663 (Version 2)
Quarter: 2022Q1

REPORT INFORMATION
  Report Type: Spontaneous
  Country: ID (occurrence: ID)
  Receive Date: 20220214
  Receipt Date: 20220218
  Transmission Date: 20220423
  Serious: Yes (Other)
  Sender: FDA-Public Use
  Company Number: ID-OTSUKA-2022_004901

PATIENT
  Age: 78 Year
  Sex: Female

DRUGS (4)
  1. REXULTI [Suspect]
     Active Substance: BREXPIPRAZOLE
     Indication: Major depression
     Dosage: 0.5 MG, QD
     Route: 048
     Dates: start: 20211219, end: 20211225
  2. ALPRAZOLAM [Suspect]
     Active Substance: ALPRAZOLAM
     Indication: Major depression
     Dosage: 0.5 MG, QD
     Route: 048
     Dates: start: 20211219, end: 20211225
  3. HEXYMER [Concomitant]
     Indication: Extrapyramidal disorder
     Dosage: 2 MG, QD
     Route: 048
     Dates: start: 20211219, end: 20211225
  4. HEXYMER [Concomitant]
     Indication: Prophylaxis

REACTIONS (3)
  - Dementia Alzheimer^s type [Unknown]
  - Muscle rigidity [Unknown]
  - Product use in unapproved indication [Unknown]

NARRATIVE: CASE EVENT DATE: 20211219
